FAERS Safety Report 4512626-5 (Version None)
Quarter: 2004Q4

REPORT INFORMATION
  Report Type: 
  Country: None (occurrence: None)
  Receive Date: 20041124
  Receipt Date: 20041109
  Transmission Date: 20050328
  Serious: Yes (Hospitalization)
  Sender: FDA-Public Use
  Company Number: 207551

PATIENT
  Age: 48 Year
  Sex: Female

DRUGS (1)
  1. AVONEX [Suspect]
     Indication: MULTIPLE SCLEROSIS
     Dosage: 30 UG; QW; IM
     Route: 030
     Dates: start: 20030101, end: 20030101

REACTIONS (11)
  - BACK PAIN [None]
  - CONDITION AGGRAVATED [None]
  - DEHYDRATION [None]
  - DERMATITIS [None]
  - DRUG INEFFECTIVE [None]
  - DRY SKIN [None]
  - INJECTION SITE ERYTHEMA [None]
  - INJECTION SITE PRURITUS [None]
  - INJECTION SITE SWELLING [None]
  - MUCOSAL DRYNESS [None]
  - MULTIPLE SCLEROSIS [None]
